FAERS Safety Report 6615470-8 (Version None)
Quarter: 2010Q1

REPORT INFORMATION
  Report Type: 
  Country: None (occurrence: None)
  Receive Date: 20100301
  Receipt Date: 20100218
  Transmission Date: 20100710
  Serious: Yes (Hospitalization)
  Sender: FDA-Public Use
  Company Number: 2010SP010097

PATIENT
  Age: 81 Year
  Sex: Female

DRUGS (8)
  1. MIRTAZAPINE [Suspect]
     Indication: DRUG USE FOR UNKNOWN INDICATION
     Dosage: 15 MG; QD; PO; 30 MG; QD; PO; 45 MG; QD; PO
     Route: 048
     Dates: start: 20091218, end: 20091228
  2. MIRTAZAPINE [Suspect]
     Indication: DRUG USE FOR UNKNOWN INDICATION
     Dosage: 15 MG; QD; PO; 30 MG; QD; PO; 45 MG; QD; PO
     Route: 048
     Dates: start: 20091229, end: 20100112
  3. MIRTAZAPINE [Suspect]
     Indication: DRUG USE FOR UNKNOWN INDICATION
     Dosage: 15 MG; QD; PO; 30 MG; QD; PO; 45 MG; QD; PO
     Route: 048
     Dates: start: 20100113, end: 20100121
  4. MIRTAZAPINE [Suspect]
     Indication: DRUG USE FOR UNKNOWN INDICATION
     Dosage: 15 MG; QD; PO; 30 MG; QD; PO; 45 MG; QD; PO
     Route: 048
     Dates: start: 20100122
  5. METOCLOPRAMIDE [Suspect]
     Indication: GASTROINTESTINAL DISORDER
     Dosage: 5 MG; QD; PO
     Route: 048
     Dates: start: 20100112
  6. HCT HEXAL [Concomitant]
  7. L-THYROXIN [Concomitant]
  8. DIOVAN [Concomitant]

REACTIONS (6)
  - ALANINE AMINOTRANSFERASE ABNORMAL [None]
  - DRUG INTERACTION [None]
  - GAMMA-GLUTAMYLTRANSFERASE ABNORMAL [None]
  - MENTAL DISORDER [None]
  - PARAESTHESIA [None]
  - RESTLESS LEGS SYNDROME [None]
